FAERS Safety Report 4612424-8 (Version None)
Quarter: 2005Q1

REPORT INFORMATION
  Report Type: 
  Country: None (occurrence: None)
  Receive Date: 20050316
  Receipt Date: 20050301
  Transmission Date: 20050727
  Serious: Yes (Hospitalization, Other)
  Sender: FDA-Public Use
  Company Number: USA041080355

PATIENT
  Age: 95 Year
  Sex: Female
  Weight: 45 kg

DRUGS (5)
  1. ZYPREXA [Suspect]
     Indication: DEMENTIA ALZHEIMER'S TYPE
     Dosage: 2.5 MG/2 DAY
  2. TYLENOL PM [Concomitant]
     Indication: AGGRESSION
  3. FUROSMEIDE (FUROSEMIDE) [Concomitant]
  4. PRAVACHOL [Concomitant]
  5. POTASSIUM CHLORIDE [Concomitant]

REACTIONS (3)
  - DEPRESSED LEVEL OF CONSCIOUSNESS [None]
  - DRUG INTERACTION [None]
  - LETHARGY [None]
